FAERS Safety Report 10074030 (Version 1)
Quarter: 2014Q2

REPORT INFORMATION
  Report Type: Spontaneous
  Country: US (occurrence: US)
  Receive Date: 20140411
  Receipt Date: 20140411
  Transmission Date: 20141212
  Serious: No
  Sender: FDA-Public Use
  Company Number: US-SA-2013SA133631

PATIENT
  Age: 54 Year
  Sex: Female

DRUGS (1)
  1. ALLEGRA D [Suspect]
     Indication: SINUS HEADACHE
     Dosage: TAKEN FROM:COUPLE OF WEEKS AGO?DOSE: 180/240 MG
     Route: 048

REACTIONS (3)
  - Rhinorrhoea [Not Recovered/Not Resolved]
  - Sinus headache [Not Recovered/Not Resolved]
  - Medication residue present [Unknown]
